FAERS Safety Report 10959484 (Version 2)
Quarter: 2015Q2

REPORT INFORMATION
  Report Type: Spontaneous
  Country: BG (occurrence: BG)
  Receive Date: 20150327
  Receipt Date: 20150402
  Transmission Date: 20150821
  Serious: Yes (Hospitalization, Other)
  Sender: FDA-Public Use
  Company Number: BG-ASTRAZENECA-2015SE27086

PATIENT
  Age: 72 Year
  Sex: Male

DRUGS (6)
  1. ROSUVASTATIN [Suspect]
     Active Substance: ROSUVASTATIN
     Route: 065
  2. BRILIQUE [Suspect]
     Active Substance: TICAGRELOR
     Indication: ACUTE CORONARY SYNDROME
     Route: 048
  3. ACE-INHIBITORS [Suspect]
     Active Substance: UNSPECIFIED INGREDIENT
     Route: 065
  4. ACETYLSALICYLIC ACID [Suspect]
     Active Substance: ASPIRIN
     Route: 065
  5. BETABLOCKERS [Suspect]
     Active Substance: UNSPECIFIED INGREDIENT
     Route: 065
  6. BRILIQUE [Suspect]
     Active Substance: TICAGRELOR
     Indication: ACUTE CORONARY SYNDROME
     Route: 048
     Dates: start: 20150202, end: 20150212

REACTIONS (2)
  - Rectal haemorrhage [Recovered/Resolved]
  - Gastric haemorrhage [Unknown]
